FAERS Safety Report 9313952 (Version 3)
Quarter: 2013Q3

REPORT INFORMATION
  Report Type: Spontaneous
  Country: US (occurrence: US)
  Receive Date: 20130529
  Receipt Date: 20130701
  Transmission Date: 20140515
  Serious: No
  Sender: FDA-Public Use
  Company Number: US-AMGEN-USASP2013037002

PATIENT
  Age: 53 Year
  Sex: Female
  Weight: 62.59 kg

DRUGS (8)
  1. PROLIA [Suspect]
     Indication: OSTEOPOROSIS POSTMENOPAUSAL
     Dosage: 60 MG, Q6MO
     Route: 058
     Dates: start: 20121017
  2. PROLIA [Suspect]
     Dosage: UNK
  3. IMITREX                            /01044801/ [Concomitant]
     Dosage: 100 MG, UNK
  4. FLONASE [Concomitant]
     Dosage: UNK UNK, QD
  5. MULTIVITAMINS [Concomitant]
     Route: 048
  6. VITAMIN D3 [Concomitant]
  7. ASPIRIN [Concomitant]
     Dosage: 81 MG, QD
     Route: 048
  8. ALEVE [Concomitant]
     Dosage: UNK UNK, BID

REACTIONS (4)
  - Rash pruritic [Unknown]
  - Joint stiffness [Unknown]
  - Local swelling [Unknown]
  - Arthralgia [Unknown]
